FAERS Safety Report 4456711-5 (Version None)
Quarter: 2004Q3

REPORT INFORMATION
  Report Type: 
  Country: None (occurrence: None)
  Receive Date: 20040923
  Receipt Date: 20040716
  Transmission Date: 20050211
  Serious: Yes (Other)
  Sender: FDA-Public Use
  Company Number: 200417115US

PATIENT
  Sex: Female

DRUGS (1)
  1. ARAVA [Suspect]
     Indication: RHEUMATOID ARTHRITIS
     Dosage: DOSE: NOT PROVIDED
     Dates: start: 19990101, end: 20040401

REACTIONS (7)
  - BREAST CANCER [None]
  - BREAST CANCER FEMALE [None]
  - HAIR DISORDER [None]
  - LIVER FUNCTION TEST ABNORMAL [None]
  - NAIL DISORDER [None]
  - SKIN DISORDER [None]
  - WEIGHT DECREASED [None]
